FAERS Safety Report 5216233-0 (Version None)
Quarter: 2007Q1

REPORT INFORMATION
  Report Type: 
  Country: None (occurrence: None)
  Receive Date: 20070123
  Receipt Date: 20070116
  Transmission Date: 20070707
  Serious: Yes (Other)
  Sender: FDA-Public Use
  Company Number: NL-ROXANE LABORATORIES, INC-2007-BP-00706RO

PATIENT
  Age: 46 Year
  Sex: Female

DRUGS (5)
  1. METHOTREXATE [Suspect]
     Indication: RHEUMATOID ARTHRITIS
     Dosage: 25 MG WEEKLY X 10 MONTHS
     Route: 058
  2. ETANERCEPT [Suspect]
     Indication: RHEUMATOID ARTHRITIS
     Dosage: 25 MG TWICE WEEKLY X 6 MONTHS
     Route: 058
  3. PREDNISOLONE [Suspect]
     Indication: RHEUMATOID ARTHRITIS
     Dosage: 5 MG DAILY
  4. SULFASALAZOPYRIDINE [Suspect]
     Indication: RHEUMATOID ARTHRITIS
  5. CYCLOSPORINE [Suspect]
     Indication: RHEUMATOID ARTHRITIS

REACTIONS (8)
  - ANAPHYLACTIC REACTION [None]
  - BLOOD PRESSURE DECREASED [None]
  - CHEST DISCOMFORT [None]
  - DRUG INEFFECTIVE [None]
  - FACE OEDEMA [None]
  - PERIORBITAL OEDEMA [None]
  - RASH MACULAR [None]
  - URTICARIA [None]
